FAERS Safety Report 7810393-0 (Version None)
Quarter: 2011Q4

REPORT INFORMATION
  Report Type: 
  Country: None (occurrence: None)
  Receive Date: 20111012
  Receipt Date: 20111003
  Transmission Date: 20120403
  Serious: Yes (Hospitalization)
  Sender: FDA-Public Use
  Company Number: CA-ASTRAZENECA-2011SE59587

PATIENT
  Age: 78 Year
  Sex: Male

DRUGS (4)
  1. DABIGATRAN [Concomitant]
     Indication: ANTICOAGULANT THERAPY
     Route: 048
  2. WARFARIN SODIUM [Concomitant]
     Route: 048
     Dates: end: 20100101
  3. CRESTOR [Suspect]
     Indication: BLOOD CHOLESTEROL ABNORMAL
     Route: 048
  4. METOPROLOL TARTRATE [Concomitant]
     Indication: ARRHYTHMIA
     Route: 048

REACTIONS (3)
  - ARRHYTHMIA [None]
  - BACK PAIN [None]
  - ARTHRALGIA [None]
